FAERS Safety Report 4401238-X (Version None)
Quarter: 2004Q3

REPORT INFORMATION
  Report Type: 
  Country: None (occurrence: None)
  Receive Date: 20040907
  Receipt Date: 20040113
  Transmission Date: 20050211
  Serious: No
  Sender: FDA-Public Use
  Company Number: US-BRISTOL-MYERS SQUIBB COMPANY-12477832

PATIENT

DRUGS (3)
  1. COUMADIN [Suspect]
  2. TOPROL-XL [Concomitant]
  3. ALTACE [Concomitant]

REACTIONS (2)
  - DYSPNOEA [None]
  - INTERNATIONAL NORMALISED RATIO ABNORMAL [None]
